FAERS Safety Report 12341696 (Version 1)
Quarter: 2016Q2

REPORT INFORMATION
  Report Type: Spontaneous
  Country: JP (occurrence: JP)
  Receive Date: 20160506
  Receipt Date: 20160506
  Transmission Date: 20160815
  Serious: Yes (Other)
  Sender: FDA-Public Use
  Company Number: JP-JNJFOC-20160426842

PATIENT
  Age: 77 Year
  Sex: Female

DRUGS (1)
  1. ITRIZOLE [Suspect]
     Active Substance: ITRACONAZOLE
     Indication: ORAL CANDIDIASIS
     Dosage: 5 ML X 1 PER 1 DAY / LIQUID MEDICINE FOR INTERNAL USE
     Route: 048

REACTIONS (1)
  - Enterocolitis haemorrhagic [Recovering/Resolving]
